FAERS Safety Report 7082968-0 (Version None)
Quarter: 2010Q4

REPORT INFORMATION
  Report Type: 
  Country: None (occurrence: None)
  Receive Date: 20101026
  Receipt Date: 20101011
  Transmission Date: 20110411
  Serious: Yes (Hospitalization, Disabling)
  Sender: FDA-Public Use
  Company Number: 2010DE0031

PATIENT
  Age: 3 Year
  Sex: Male

DRUGS (1)
  1. ORFADIN [Suspect]
     Indication: TYROSINAEMIA
     Dosage: 17 MG (17 MG,1 IN 1 D) ORAL
     Route: 048
     Dates: start: 20060818

REACTIONS (5)
  - BRONCHITIS [None]
  - DIARRHOEA [None]
  - OPISTHOTONUS [None]
  - QUADRIPARESIS [None]
  - TREATMENT NONCOMPLIANCE [None]
